FAERS Safety Report 4468895-3 (Version None)
Quarter: 2004Q4

REPORT INFORMATION
  Report Type: 
  Country: None (occurrence: None)
  Receive Date: 20041005
  Receipt Date: 20041005
  Transmission Date: 20050328
  Serious: Yes (Disabling)
  Sender: FDA-Public Use
  Company Number: None

PATIENT
  Age: 57 Year
  Sex: Male
  Weight: 85.2762 kg

DRUGS (2)
  1. CIPROFLOXACIN HCL [Suspect]
     Indication: BACTERIAL INFECTION
     Dosage: 2 X DAY
     Dates: start: 20040827, end: 20040901
  2. CIPROFLOXACIN HCL [Suspect]
     Indication: PROSTATITIS
     Dosage: 2 X DAY
     Dates: start: 20040827, end: 20040901

REACTIONS (5)
  - ARTHRALGIA [None]
  - ASTHENIA [None]
  - CONTUSION [None]
  - PAIN IN EXTREMITY [None]
  - SKIN ULCER [None]
